FAERS Safety Report 11089527 (Version 4)
Quarter: 2015Q2

REPORT INFORMATION
  Report Type: Spontaneous
  Country: US (occurrence: US)
  Receive Date: 20150505
  Receipt Date: 20150610
  Transmission Date: 20150821
  Serious: Yes (Hospitalization)
  Sender: FDA-Public Use
  Company Number: US-UNITED THERAPEUTICS-UNT-2015-004623

PATIENT
  Age: 55 Year
  Sex: Female
  Weight: 99.32 kg

DRUGS (6)
  1. REMODULIN [Suspect]
     Active Substance: TREPROSTINIL
     Indication: PULMONARY ARTERIAL HYPERTENSION
     Dosage: 0.035 ?G/KG/MIN, CONTINUING
     Route: 041
     Dates: start: 20141212
  2. REMODULIN [Suspect]
     Active Substance: TREPROSTINIL
     Dosage: 0.023 ?G/KG, CONTINUING
     Route: 041
     Dates: start: 20141222
  3. OPSUMIT [Concomitant]
     Active Substance: MACITENTAN
     Indication: PRODUCT USED FOR UNKNOWN INDICATION
  4. REMODULIN [Suspect]
     Active Substance: TREPROSTINIL
     Dosage: 0.102 ?G/KG, CONTINUING
     Route: 041
     Dates: start: 20150109
  5. SILDENAFIL. [Concomitant]
     Active Substance: SILDENAFIL
     Indication: PRODUCT USED FOR UNKNOWN INDICATION
  6. ASPIRIN                            /00002701/ [Concomitant]
     Active Substance: ASPIRIN
     Indication: PRODUCT USED FOR UNKNOWN INDICATION
     Dosage: 81 MG, UNK

REACTIONS (5)
  - Epistaxis [Recovered/Resolved]
  - Anxiety [Unknown]
  - Device leakage [Recovered/Resolved]
  - Thrombosis in device [Unknown]
  - Drug dose omission [Recovered/Resolved]

NARRATIVE: CASE EVENT DATE: 201504
